FAERS Safety Report 19887961 (Version 3)
Quarter: 2021Q4

REPORT INFORMATION
  Report Type: Spontaneous
  Country: GB (occurrence: GB)
  Receive Date: 20210927
  Receipt Date: 20211108
  Transmission Date: 20220303
  Serious: Yes (Death, Other)
  Sender: FDA-Public Use
  Company Number: GB-MYLANLABS-2021M1065361

PATIENT
  Sex: Male

DRUGS (1)
  1. CLOZARIL [Suspect]
     Active Substance: CLOZAPINE
     Indication: Schizophrenia
     Dosage: 200 MG AT LUNCH, 150 MG ON
     Route: 048
     Dates: start: 20181114

REACTIONS (2)
  - Metastases to central nervous system [Fatal]
  - Lung neoplasm malignant [Unknown]
